FAERS Safety Report 6911745-3 (Version None)
Quarter: 2010Q3

REPORT INFORMATION
  Report Type: 
  Country: None (occurrence: None)
  Receive Date: 20100806
  Receipt Date: 20100730
  Transmission Date: 20110219
  Serious: Yes (Hospitalization, Other)
  Sender: FDA-Public Use
  Company Number: US-B.I. PHARMACEUTICALS,INC./RIDGEFIELD-2010-BP-08008PF

PATIENT
  Sex: Male
  Weight: 73.94 kg

DRUGS (15)
  1. SPIRIVA [Suspect]
  2. CHANTIX [Suspect]
     Indication: SMOKING CESSATION THERAPY
     Dosage: 0.5 MG
     Route: 048
     Dates: start: 20010101
  3. WELLBUTRIN [Concomitant]
  4. CARISOPRODOL [Concomitant]
     Indication: NERVE INJURY
  5. CARISOPRODOL [Concomitant]
     Indication: MUSCLE RELAXANT THERAPY
  6. BUPROPION HCL [Concomitant]
     Indication: NERVE INJURY
  7. BUPROPION HCL [Concomitant]
     Indication: MUSCLE RELAXANT THERAPY
  8. CLONAZEPAM [Concomitant]
     Dosage: 10 MG
  9. ROSUVASTATIN [Concomitant]
  10. ASPIRIN [Concomitant]
     Indication: CARDIAC DISORDER
     Dosage: 81 MG
  11. NEURONTIN [Concomitant]
  12. MULTI-VITAMIN [Concomitant]
  13. CYMBALTA [Concomitant]
  14. TRAZODONE [Concomitant]
  15. AXID [Concomitant]

REACTIONS (15)
  - ANXIETY [None]
  - ARTHRALGIA [None]
  - FATIGUE [None]
  - FEELING ABNORMAL [None]
  - HYPERSOMNIA [None]
  - HYPERTENSION [None]
  - LETHARGY [None]
  - LOSS OF CONSCIOUSNESS [None]
  - MALAISE [None]
  - MYOCARDIAL ISCHAEMIA [None]
  - PAIN [None]
  - PANIC ATTACK [None]
  - SLEEP DISORDER [None]
  - SOMNOLENCE [None]
  - TOBACCO USER [None]
